FAERS Safety Report 17842959 (Version 1)
Quarter: 2020Q2

REPORT INFORMATION
  Report Type: Spontaneous
  Country: US (occurrence: US)
  Receive Date: 20200530
  Receipt Date: 20200530
  Transmission Date: 20200714
  Serious: Yes (Hospitalization, Other)
  Sender: FDA-Public Use
  Company Number: US-AUROBINDO-AUR-APL-2020-025796

PATIENT
  Age: 56 Year
  Sex: Male

DRUGS (2)
  1. RITUXIMAB. [Suspect]
     Active Substance: RITUXIMAB
     Indication: FIBRILLARY GLOMERULONEPHRITIS
     Dosage: 1000 MILLIGRAM (TWO DOSES)
     Route: 065
  2. LISINOPRIL. [Suspect]
     Active Substance: LISINOPRIL
     Indication: FIBRILLARY GLOMERULONEPHRITIS
     Dosage: UNK
     Route: 065

REACTIONS (3)
  - Blood creatinine increased [Not Recovered/Not Resolved]
  - Drug ineffective [Unknown]
  - Proteinuria [Not Recovered/Not Resolved]
